FAERS Safety Report 5085394-9 (Version None)
Quarter: 2006Q3

REPORT INFORMATION
  Report Type: 
  Country: None (occurrence: None)
  Receive Date: 20060822
  Receipt Date: 20050929
  Transmission Date: 20061208
  Serious: Yes (Disabling)
  Sender: FDA-Public Use
  Company Number: FR-BRISTOL-MYERS SQUIBB COMPANY-13129093

PATIENT
  Age: 24 Year
  Sex: Male
  Weight: 70 kg

DRUGS (4)
  1. ABILIFY [Suspect]
     Indication: SCHIZOPHRENIA
     Route: 048
     Dates: start: 20050613, end: 20050923
  2. ZYPREXA [Suspect]
     Route: 048
     Dates: end: 20050813
  3. NOZINAN [Concomitant]
  4. XANAX [Concomitant]

REACTIONS (2)
  - MOVEMENT DISORDER [None]
  - MUSCULOSKELETAL STIFFNESS [None]
